FAERS Safety Report 20657975 (Version 4)
Quarter: 2022Q2

REPORT INFORMATION
  Report Type: Report from Study
  Country: KR (occurrence: KR)
  Receive Date: 20220331
  Receipt Date: 20220606
  Transmission Date: 20220721
  Serious: Yes (Hospitalization)
  Sender: FDA-Public Use
  Company Number: KR-PUMA BIOTECHNOLOGY, INC.-2022-PUM-KR000459

PATIENT

DRUGS (4)
  1. NERATINIB [Suspect]
     Active Substance: NERATINIB
     Indication: Breast cancer metastatic
     Dosage: 240 MG
     Route: 048
     Dates: start: 202108
  2. NERATINIB [Suspect]
     Active Substance: NERATINIB
     Dosage: 160 MG
     Route: 048
     Dates: start: 20220213
  3. NERATINIB [Suspect]
     Active Substance: NERATINIB
     Dosage: 200 MG
     Route: 048
     Dates: start: 202202, end: 20220227
  4. NERATINIB [Suspect]
     Active Substance: NERATINIB
     Dosage: 200 MG
     Route: 048
     Dates: start: 20220228, end: 20220310

REACTIONS (3)
  - Delirium [Unknown]
  - Bacterial sepsis [Unknown]
  - Off label use [Unknown]

NARRATIVE: CASE EVENT DATE: 20220310
